FAERS Safety Report 8765583 (Version 1)
Quarter: 2012Q4

REPORT INFORMATION
  Report Type: 
  Country: AR (occurrence: AR)
  Receive Date: 20120903
  Receipt Date: 20120903
  Transmission Date: 20130627
  Serious: Yes (Hospitalization)
  Sender: FDA-Public Use
  Company Number: PHHY2012AR075714

PATIENT
  Sex: Female

DRUGS (2)
  1. EXFORGE [Suspect]
     Indication: BLOOD PRESSURE
     Dosage: 1 DF, daily (160/5 mg)
     Dates: start: 201206, end: 20120704
  2. EXFORGE [Suspect]
     Dosage: 1 DF, daily (160/5 mg)

REACTIONS (5)
  - Urinary tract infection [Recovering/Resolving]
  - Dehydration [Recovering/Resolving]
  - Syncope [Recovering/Resolving]
  - Fatigue [Recovering/Resolving]
  - Blood pressure fluctuation [Recovering/Resolving]
